FAERS Safety Report 9430631 (Version 1)
Quarter: 2013Q3

REPORT INFORMATION
  Report Type: Report from Study
  Country: US (occurrence: US)
  Receive Date: 20130730
  Receipt Date: 20130730
  Transmission Date: 20140515
  Serious: No
  Sender: FDA-Public Use
  Company Number: US-ABBOTT-13P-163-1095966-00

PATIENT
  Age: 60 Year
  Sex: Female
  Weight: 91.25 kg

DRUGS (5)
  1. NIASPAN (COATED) [Suspect]
     Indication: BLOOD TRIGLYCERIDES INCREASED
     Dates: start: 20130522
  2. SPIRONOLACT [Concomitant]
     Indication: PRODUCT USED FOR UNKNOWN INDICATION
  3. KRILL OIL [Concomitant]
     Indication: VITAMIN SUPPLEMENTATION
  4. VITAMIN D [Concomitant]
     Indication: PRODUCT USED FOR UNKNOWN INDICATION
  5. VITAMIN E [Concomitant]
     Indication: PRODUCT USED FOR UNKNOWN INDICATION

REACTIONS (2)
  - Flushing [Recovering/Resolving]
  - Lip swelling [Recovering/Resolving]
